FAERS Safety Report 4306801-2 (Version None)
Quarter: 2004Q1

REPORT INFORMATION
  Report Type: 
  Country: None (occurrence: None)
  Receive Date: 20040225
  Receipt Date: 20040213
  Transmission Date: 20041129
  Serious: Yes (Hospitalization)
  Sender: FDA-Public Use
  Company Number: NSADSS2001002765

PATIENT
  Age: 53 Year
  Sex: Female
  Weight: 65 kg

DRUGS (5)
  1. REMICADE [Suspect]
     Indication: RHEUMATOID ARTHRITIS
     Dosage: 195 MG, 1 IN 1 AS NECESSARY, INTRAVENOUS DRIP (SEE IMAGE)
     Route: 041
     Dates: start: 19991216, end: 19991216
  2. REMICADE [Suspect]
     Indication: RHEUMATOID ARTHRITIS
     Dosage: 195 MG, 1 IN 1 AS NECESSARY, INTRAVENOUS DRIP (SEE IMAGE)
     Route: 041
     Dates: start: 20000707, end: 20000707
  3. METHOTREXATE [Suspect]
     Indication: RHEUMATOID ARTHRITIS
     Dosage: 15 MG, ORAL
     Route: 048
     Dates: start: 19910501
  4. PREDNISOLON (PREDISOLONE) TABLETS [Concomitant]
  5. EUTHYROX (LEVOTHYROXINE SODIUM) TABLETS [Concomitant]

REACTIONS (6)
  - BONE MARROW TOXICITY [None]
  - HEPATOCELLULAR DAMAGE [None]
  - LEUKOPENIA [None]
  - PYELONEPHRITIS [None]
  - THROMBOCYTOPENIA [None]
  - VERTIGO POSITIONAL [None]
